FAERS Safety Report 4382135-5 (Version None)
Quarter: 2004Q2

REPORT INFORMATION
  Report Type: 
  Country: None (occurrence: None)
  Receive Date: 20040617
  Receipt Date: 20030904
  Transmission Date: 20050107
  Serious: Yes (Hospitalization)
  Sender: FDA-Public Use
  Company Number: 346296

PATIENT
  Age: 45 Year
  Sex: Female
  Weight: 99.8 kg

DRUGS (3)
  1. XENICAL [Suspect]
     Indication: OBESITY
     Dosage: 240 MG DAILY ORAL
     Route: 048
     Dates: start: 20030721, end: 20030811
  2. XENICAL [Suspect]
     Indication: WEIGHT DECREASED
     Dosage: 240 MG DAILY ORAL
     Route: 048
     Dates: start: 20030721, end: 20030811
  3. SEROQUEL [Concomitant]

REACTIONS (2)
  - DISEASE RECURRENCE [None]
  - DIZZINESS [None]
